FAERS Safety Report 7959018-4 (Version None)
Quarter: 2011Q4

REPORT INFORMATION
  Report Type: 
  Country: None (occurrence: None)
  Receive Date: 20111206
  Receipt Date: 20111130
  Transmission Date: 20120403
  Serious: Yes (Hospitalization)
  Sender: FDA-Public Use
  Company Number: AR-AMGEN-ARGCT2011046783

PATIENT
  Age: 64 Year
  Sex: Female
  Weight: 69.4 kg

DRUGS (10)
  1. BLINDED DARBEPOETIN ALFA [Suspect]
     Dates: start: 20110831, end: 20110831
  2. CARBOPLATIN [Concomitant]
     Dates: start: 20110802
  3. ATENOLOL [Concomitant]
     Dates: start: 20110215
  4. BLINDED PLACEBO [Suspect]
     Dates: start: 20110831, end: 20110831
  5. BLINDED PLACEBO [Suspect]
     Indication: ANAEMIA
     Dosage: 1 ML, UNK
     Dates: start: 20110831
  6. DEXAMERAL [Concomitant]
     Dates: start: 20110831, end: 20110831
  7. BLINDED DARBEPOETIN ALFA [Suspect]
     Indication: ANAEMIA
     Dosage: 1 ML, UNK
     Dates: start: 20110831
  8. ASPIRIN [Concomitant]
     Indication: HYPERTENSION
     Dates: start: 20020215
  9. GEMCITABINA [Concomitant]
     Dates: start: 20110802
  10. ATLANSIL [Concomitant]
     Indication: HYPERTENSION
     Dates: start: 20020215

REACTIONS (1)
  - PSYCHOTIC DISORDER [None]
